FAERS Safety Report 24682414 (Version 1)
Quarter: 2024Q4

REPORT INFORMATION
  Report Type: Spontaneous
  Country: US (occurrence: US)
  Receive Date: 20241130
  Receipt Date: 20241130
  Transmission Date: 20250115
  Serious: No
  Sender: ABBVIE
  Company Number: US-ABBVIE-6018476

PATIENT
  Age: 59 Year
  Sex: Female

DRUGS (1)
  1. RINVOQ [Suspect]
     Active Substance: UPADACITINIB
     Indication: Product used for unknown indication
     Route: 048
     Dates: start: 202401

REACTIONS (6)
  - Diverticulitis [Not Recovered/Not Resolved]
  - Blood cholesterol increased [Unknown]
  - Condition aggravated [Unknown]
  - Low density lipoprotein increased [Unknown]
  - Lipoprotein increased [Unknown]
  - Stress [Unknown]

NARRATIVE: CASE EVENT DATE: 20240101
